FAERS Safety Report 8185455-1 (Version None)
Quarter: 2012Q1

REPORT INFORMATION
  Report Type: 
  Country: None (occurrence: None)
  Receive Date: 20120301
  Receipt Date: 20120301
  Transmission Date: 20120608
  Serious: No
  Sender: FDA-Public Use
  Company Number: CM12-002

PATIENT
  Age: 77 Year
  Sex: Male
  Weight: 88.4514 kg

DRUGS (10)
  1. PHENYLEPHRINE HCL [Concomitant]
  2. VALIUM [Concomitant]
  3. MYDRIACYL [Concomitant]
  4. BETADINE [Concomitant]
  5. VIGAMOX [Concomitant]
  6. CYCLOMYDRIL [Concomitant]
  7. OCUCOAT [Concomitant]
  8. EPINEPHRINE [Suspect]
     Indication: EYE OPERATION
     Dosage: 0.2ML IN A 500ML BALANCED SALINE SOLUTION, ONE TIME, INTRAOCULAR
     Route: 031
     Dates: start: 20111221, end: 20111221
  9. PROPARACAINE HCL [Concomitant]
  10. TETRAVISC [Concomitant]

REACTIONS (4)
  - STREPTOCOCCUS TEST POSITIVE [None]
  - POST PROCEDURAL INFECTION [None]
  - EYE INFECTION [None]
  - TREATMENT NONCOMPLIANCE [None]
